FAERS Safety Report 6805349-0 (Version None)
Quarter: 2010Q2

REPORT INFORMATION
  Report Type: 
  Country: None (occurrence: None)
  Receive Date: 20100628
  Receipt Date: 20071022
  Transmission Date: 20101027
  Serious: No
  Sender: FDA-Public Use
  Company Number: US-PFIZER INC-2007089952

PATIENT
  Sex: Female
  Weight: 64.1 kg

DRUGS (1)
  1. XALATAN [Suspect]
     Indication: GLAUCOMA

REACTIONS (2)
  - BODY HEIGHT DECREASED [None]
  - HYPOAESTHESIA [None]
